FAERS Safety Report 8440494-8 (Version None)
Quarter: 2012Q2

REPORT INFORMATION
  Report Type: 
  Country: None (occurrence: None)
  Receive Date: 20120615
  Receipt Date: 20120608
  Transmission Date: 20120825
  Serious: Yes (Life-Threatening)
  Sender: FDA-Public Use
  Company Number: IT-VIIV HEALTHCARE LIMITED-B0807888A

PATIENT
  Sex: Male

DRUGS (5)
  1. PREZISTA [Suspect]
     Indication: ACUTE HIV INFECTION
     Dosage: 600MG TWICE PER DAY
     Route: 048
     Dates: start: 20061030, end: 20111030
  2. ZIAGEN [Suspect]
     Indication: ACUTE HIV INFECTION
     Dosage: 300MG PER DAY
     Route: 048
     Dates: start: 20061030, end: 20111223
  3. NORVIR [Suspect]
     Indication: ACUTE HIV INFECTION
     Dosage: 100MG TWICE PER DAY
     Dates: start: 20061030, end: 20111223
  4. ENALAPRIL [Concomitant]
     Indication: HYPERTENSION
     Dosage: 20MG PER DAY
     Route: 048
     Dates: start: 20100927, end: 20120604
  5. VIREAD [Concomitant]
     Indication: ACUTE HIV INFECTION
     Dosage: 245MG PER DAY
     Route: 048
     Dates: start: 20061030, end: 20120604

REACTIONS (1)
  - CORONARY ARTERY OCCLUSION [None]
